FAERS Safety Report 6138111-5 (Version None)
Quarter: 2009Q1

REPORT INFORMATION
  Report Type: 
  Country: None (occurrence: None)
  Receive Date: 20090331
  Receipt Date: 20090130
  Transmission Date: 20090719
  Serious: Yes (Death)
  Sender: FDA-Public Use
  Company Number: US-TYCO HEALTHCARE/MALLINCKRODT-T200900501

PATIENT
  Age: 40 Year
  Sex: Female

DRUGS (7)
  1. BUTALBITAL ACETAMINOPHEN AND CAFFEINE [Suspect]
     Route: 048
  2. HYDROMORPHONE HCL [Suspect]
     Route: 048
  3. DIDANOSINE [Suspect]
     Route: 048
  4. RITONAVIR [Suspect]
     Route: 048
  5. ATAZANAVIR SULFATE [Suspect]
     Route: 048
  6. EMTRICITABINE W/TENOFOVIR [Suspect]
     Route: 048
  7. TRIMETHOPRIM + SULFAMETHOXAZOLE [Suspect]
     Route: 048

REACTIONS (1)
  - COMPLETED SUICIDE [None]
